FAERS Safety Report 7273073 (Version 2)
Quarter: 2015Q4

REPORT INFORMATION
  Report Type: Report from Study
  Country: FR (occurrence: FR)
  Receive Date: 20100208
  Receipt Date: 20151216
  Transmission Date: 20160305
  Serious: Yes (Other)
  Sender: FDA-Public Use
  Company Number: FR-ROCHE-682442

PATIENT
  Age: 22 Year
  Sex: Female
  Weight: 56 kg

DRUGS (12)
  1. METHOTREXATE [Suspect]
     Active Substance: METHOTREXATE
     Indication: RHEUMATOID ARTHRITIS
     Route: 048
     Dates: start: 200906
  2. DOMPERIDONE [Concomitant]
     Active Substance: DOMPERIDONE
     Route: 065
     Dates: start: 20100118, end: 20100118
  3. DIOSMECTITE [Concomitant]
     Active Substance: MONTMORILLONITE
     Dosage: DOSE: 1 PER DAY.
     Route: 065
     Dates: start: 20100118, end: 20100118
  4. PREDNISONE. [Concomitant]
     Active Substance: PREDNISONE
     Route: 065
  5. PLACEBO [Suspect]
     Active Substance: UNSPECIFIED INGREDIENT
     Indication: RHEUMATOID ARTHRITIS
     Dosage: PERMANENTLY DISCONTINUED ;LAST DOSE PRIOR TO SAE: 28 DEC 2009
     Route: 042
     Dates: start: 20091127
  6. METHOTREXATE [Suspect]
     Active Substance: METHOTREXATE
     Dosage: TEMPORARILY INTERRUPTED, LAST DOSE: 23 JANUARY 2010
     Route: 048
     Dates: start: 20100213
  7. FOLIC ACID. [Concomitant]
     Active Substance: FOLIC ACID
     Route: 065
  8. METHOTREXATE [Suspect]
     Active Substance: METHOTREXATE
     Dosage: TEMPORARILY INTERRUPTED, LAST DOSE: 23 JANUARY 2010
     Route: 048
     Dates: start: 20090812, end: 20100125
  9. SPIRAMYCINE [Concomitant]
     Active Substance: SPIRAMYCIN
     Indication: TOOTH ABSCESS
     Dosage: PERMANENTLY DISCONTINUED, DOSE: 750000 UI
     Route: 048
     Dates: start: 20100106, end: 20100111
  10. METRONIDAZOLE. [Concomitant]
     Active Substance: METRONIDAZOLE
     Indication: TOOTH ABSCESS
     Dosage: TEMPORARILY INTERRUPTED
     Route: 048
     Dates: start: 20100106, end: 20100111
  11. TOCILIZUMAB [Suspect]
     Active Substance: TOCILIZUMAB
     Indication: RHEUMATOID ARTHRITIS
     Route: 042
     Dates: end: 201004
  12. DESOGESTREL [Concomitant]
     Active Substance: DESOGESTREL
     Route: 065

REACTIONS (2)
  - Drug-induced liver injury [Recovered/Resolved]
  - Transaminases increased [Recovered/Resolved]

NARRATIVE: CASE EVENT DATE: 20100125
